FAERS Safety Report 10451415 (Version 2)
Quarter: 2014Q3

REPORT INFORMATION
  Report Type: Spontaneous
  Country: US (occurrence: US)
  Receive Date: 20140912
  Receipt Date: 20140916
  Transmission Date: 20150326
  Serious: Yes (Hospitalization, Other)
  Sender: FDA-Public Use
  Company Number: US-GILEAD-2014-0115092

PATIENT
  Age: 45 Year
  Sex: Female

DRUGS (1)
  1. LETAIRIS [Suspect]
     Active Substance: AMBRISENTAN
     Indication: PULMONARY ARTERIAL HYPERTENSION
     Dosage: 5 MG, QD
     Route: 065
     Dates: start: 20140507

REACTIONS (7)
  - Oedema peripheral [Not Recovered/Not Resolved]
  - Skin discolouration [Not Recovered/Not Resolved]
  - Skin exfoliation [Not Recovered/Not Resolved]
  - Wound [Not Recovered/Not Resolved]
  - Oedema peripheral [Recovered/Resolved]
  - Respiratory distress [Recovered/Resolved]
  - Erythema [Unknown]

NARRATIVE: CASE EVENT DATE: 20140610
